FAERS Safety Report 17806656 (Version 2)
Quarter: 2020Q2

REPORT INFORMATION
  Report Type: Spontaneous
  Country: AU (occurrence: AU)
  Receive Date: 20200520
  Receipt Date: 20200608
  Transmission Date: 20200714
  Serious: Yes (Hospitalization, Other)
  Sender: FDA-Public Use
  Company Number: AU-MYLANLABS-2020M1027980

PATIENT
  Sex: Male

DRUGS (3)
  1. CLOZARIL [Suspect]
     Active Substance: CLOZAPINE
     Indication: SCHIZOPHRENIA
     Dosage: UNK
     Dates: start: 2017
  2. CLOZARIL [Suspect]
     Active Substance: CLOZAPINE
     Dosage: 475 MILLIGRAM
     Route: 048
     Dates: start: 20181004
  3. CLOZARIL [Suspect]
     Active Substance: CLOZAPINE
     Dosage: UP TO 475MG DAILY
     Dates: start: 201803, end: 201911

REACTIONS (3)
  - Helicobacter infection [Unknown]
  - Hospitalisation [Unknown]
  - Metabolic syndrome [Unknown]

NARRATIVE: CASE EVENT DATE: 2018
